FAERS Safety Report 20615732 (Version 1)
Quarter: 2022Q1

REPORT INFORMATION
  Report Type: Spontaneous
  Country: US (occurrence: None)
  Receive Date: 20220321
  Receipt Date: 20220321
  Transmission Date: 20220424
  Serious: No
  Sender: FDA-Public Use
  Company Number: 2022A103740

PATIENT
  Age: 53 Year
  Sex: Female
  Weight: 98.9 kg

DRUGS (2)
  1. BYDUREON BCISE [Suspect]
     Active Substance: EXENATIDE
     Indication: Type 2 diabetes mellitus
     Route: 058
     Dates: start: 2021
  2. BYDUREON [Suspect]
     Active Substance: EXENATIDE
     Indication: Type 2 diabetes mellitus
     Route: 058
     Dates: end: 2021

REACTIONS (8)
  - Glycosylated haemoglobin abnormal [Unknown]
  - Blood glucose abnormal [Not Recovered/Not Resolved]
  - COVID-19 [Recovered/Resolved]
  - Injection site reaction [Recovered/Resolved]
  - Wrong technique in product usage process [Unknown]
  - Device use issue [Not Recovered/Not Resolved]
  - Device leakage [Unknown]
  - Product dose omission issue [Not Recovered/Not Resolved]

NARRATIVE: CASE EVENT DATE: 20210101
